FAERS Safety Report 8776728 (Version 2)
Quarter: 2015Q3

REPORT INFORMATION
  Report Type: Spontaneous
  Country: US (occurrence: US)
  Receive Date: 20120910
  Receipt Date: 20150720
  Transmission Date: 20151125
  Serious: Yes (Death, Other)
  Sender: FDA-Public Use
  Company Number: US-SANOFI-AVENTIS-2012SA064158

PATIENT
  Age: 80 Year
  Sex: Male

DRUGS (2)
  1. PLAVIX [Suspect]
     Active Substance: CLOPIDOGREL BISULFATE
     Indication: STENT PLACEMENT
     Route: 065
     Dates: start: 200308, end: 2004
  2. ASPIRIN. [Concomitant]
     Active Substance: ASPIRIN
     Dates: start: 2003, end: 2004

REACTIONS (5)
  - Eye haemorrhage [Unknown]
  - Ulcer haemorrhage [Unknown]
  - Death [Fatal]
  - Staphylococcal infection [Unknown]
  - Epistaxis [Unknown]

NARRATIVE: CASE EVENT DATE: 20031031
